FAERS Safety Report 14077821 (Version 1)
Quarter: 2017Q4

REPORT INFORMATION
  Report Type: Spontaneous
  Country: US (occurrence: US)
  Receive Date: 20171012
  Receipt Date: 20171012
  Transmission Date: 20180321
  Serious: No
  Sender: FDA-Public Use
  Company Number: US-VIFOR (INTERNATIONAL) INC.-VIT-2017-09949

PATIENT
  Sex: Male

DRUGS (1)
  1. VELPHORO [Suspect]
     Active Substance: FERRIC OXYHYDROXIDE
     Indication: PRODUCT USED FOR UNKNOWN INDICATION
     Route: 048
     Dates: start: 2017, end: 2017

REACTIONS (3)
  - Nausea [Recovered/Resolved]
  - Dizziness [Recovered/Resolved]
  - Faeces hard [Recovered/Resolved]

NARRATIVE: CASE EVENT DATE: 2017
